FAERS Safety Report 11590488 (Version 1)
Quarter: 2015Q4

REPORT INFORMATION
  Report Type: Spontaneous
  Country: US (occurrence: US)
  Receive Date: 20151002
  Receipt Date: 20151002
  Transmission Date: 20160304
  Serious: Yes (Other)
  Sender: FDA-Public Use
  Company Number: US-TEVA-598269USA

PATIENT
  Sex: Male

DRUGS (3)
  1. QNASL [Suspect]
     Active Substance: BECLOMETHASONE DIPROPIONATE
     Route: 065
  2. FETZIMA [Suspect]
     Active Substance: LEVOMILNACIPRAN HYDROCHLORIDE
     Route: 065
  3. NUVIGIL [Interacting]
     Active Substance: ARMODAFINIL
     Route: 065

REACTIONS (2)
  - Rash [Unknown]
  - Drug interaction [Unknown]
